FAERS Safety Report 6235244-X (Version None)
Quarter: 2009Q2

REPORT INFORMATION
  Report Type: 
  Country: None (occurrence: None)
  Receive Date: 20090618
  Receipt Date: 20090611
  Transmission Date: 20091009
  Serious: Yes (Hospitalization)
  Sender: FDA-Public Use
  Company Number: IT-AMGEN-UK346239

PATIENT
  Sex: Male
  Weight: 68 kg

DRUGS (6)
  1. ROMIPLOSTIM [Suspect]
     Indication: IDIOPATHIC THROMBOCYTOPENIC PURPURA
     Route: 058
     Dates: start: 20090305, end: 20090430
  2. ANTRA [Concomitant]
     Route: 065
  3. CALCITRIOL [Concomitant]
     Route: 065
  4. LAMIVUDINE [Concomitant]
     Route: 065
  5. BISOPROLOL [Concomitant]
     Route: 065
  6. ENALAPRIL [Concomitant]
     Route: 065

REACTIONS (1)
  - ACUTE CORONARY SYNDROME [None]
